FAERS Safety Report 13162424 (Version 1)
Quarter: 2017Q1

REPORT INFORMATION
  Report Type: Report from Study
  Country: NL (occurrence: NL)
  Receive Date: 20170130
  Receipt Date: 20170130
  Transmission Date: 20170428
  Serious: Yes (Other)
  Sender: FDA-Public Use
  Company Number: NL-AMGEN-NLDSL2017012813

PATIENT
  Age: 81 Year
  Sex: Female

DRUGS (16)
  1. XGEVA [Suspect]
     Active Substance: DENOSUMAB
     Dosage: 70 MG/ML (1.7 ML), UNK
     Route: 065
     Dates: start: 20161027
  2. XGEVA [Suspect]
     Active Substance: DENOSUMAB
     Dosage: 70 MG/ML (1.7 ML), UNK
     Route: 065
     Dates: start: 20161125
  3. XGEVA [Suspect]
     Active Substance: DENOSUMAB
     Dosage: 70 MG/ML (1.7 ML), UNK
     Route: 065
     Dates: start: 20161220
  4. OMECAT [Concomitant]
     Dosage: 40 MG, QD
     Dates: start: 20170116
  5. XGEVA [Suspect]
     Active Substance: DENOSUMAB
     Indication: PRODUCT USED FOR UNKNOWN INDICATION
     Dosage: 120 MG, Q4WK
     Route: 058
     Dates: start: 20151224
  6. XGEVA [Suspect]
     Active Substance: DENOSUMAB
     Dosage: 70 MG/ML (1.7 ML), UNK
     Route: 065
     Dates: start: 20160930
  7. LOPERAMIDE [Concomitant]
     Active Substance: LOPERAMIDE
     Dosage: 2 MG, UNK
     Dates: start: 20160919
  8. OMEPRAZOL [Concomitant]
     Active Substance: OMEPRAZOLE
     Dosage: 40 MG, QD
     Dates: start: 20151224
  9. ACENOCOUMAROL [Concomitant]
     Active Substance: ACENOCOUMAROL
     Dosage: 1 MG, UNK
     Dates: start: 20150618
  10. SOTALOL. [Concomitant]
     Active Substance: SOTALOL
     Dosage: 40 MG, BID
     Dates: start: 20170116
  11. PARACETAMOL [Concomitant]
     Active Substance: ACETAMINOPHEN
     Dosage: 1000 MG, QD
     Dates: start: 20170104
  12. NAPROXEN. [Concomitant]
     Active Substance: NAPROXEN
     Dosage: 500 MG, BID
     Dates: start: 20151224
  13. CALCIUM CARBONATE W/COLECALCIFEROL//01980901/ [Concomitant]
     Dosage: 1 DF (1.25G/440IE 500 MG CA), QD
     Dates: start: 20151224
  14. XGEVA [Suspect]
     Active Substance: DENOSUMAB
     Dosage: 70 MG/ML (1.7 ML), UNK
     Route: 065
     Dates: start: 20170120
  15. OXYCODON [Concomitant]
     Active Substance: OXYCODONE
     Dosage: 30 MG, QD
     Dates: start: 20160830
  16. METOCLOPRAMIDE. [Concomitant]
     Active Substance: METOCLOPRAMIDE
     Dosage: 10 MG, QD
     Dates: start: 20150624

REACTIONS (4)
  - Hydroureter [Unknown]
  - Pelvic mass [Unknown]
  - Carpal tunnel decompression [Unknown]
  - Hydronephrosis [Unknown]

NARRATIVE: CASE EVENT DATE: 20160707
